FAERS Safety Report 6685966-1 (Version None)
Quarter: 2010Q2

REPORT INFORMATION
  Report Type: 
  Country: None (occurrence: None)
  Receive Date: 20100419
  Receipt Date: 20100407
  Transmission Date: 20101027
  Serious: Yes (Hospitalization, Other)
  Sender: FDA-Public Use
  Company Number: PHHY2009CA39083

PATIENT
  Sex: Female

DRUGS (8)
  1. EXJADE [Suspect]
     Indication: MYELODYSPLASTIC SYNDROME
     Dosage: 1500 MG, QD
     Route: 048
     Dates: start: 20090401
  2. EXJADE [Suspect]
     Indication: IRON OVERLOAD
     Dosage: 1000 MG, QD
     Route: 048
     Dates: start: 20090515, end: 20090908
  3. EXJADE [Suspect]
     Dosage: 1000 MG, QD
     Route: 048
  4. EXJADE [Suspect]
     Dosage: 1500 MG, QD
     Route: 048
     Dates: start: 20100329
  5. ALENDRONATE SODIUM [Concomitant]
     Dosage: 70 MG, UNK
  6. ALENDRONATE SODIUM [Concomitant]
     Dosage: 35 MG, QW
  7. VITAMIN B COMPLEX TAB [Concomitant]
  8. VITAMIN C [Concomitant]

REACTIONS (7)
  - ABDOMINAL DISCOMFORT [None]
  - BONE PAIN [None]
  - CONDITION AGGRAVATED [None]
  - CONTUSION [None]
  - HYPERTENSION [None]
  - PLATELET COUNT DECREASED [None]
  - PNEUMONIA [None]
